FAERS Safety Report 5441444-9 (Version None)
Quarter: 2007Q3

REPORT INFORMATION
  Report Type: 
  Country: None (occurrence: None)
  Receive Date: 20070904
  Receipt Date: 20070824
  Transmission Date: 20080115
  Serious: Yes (Hospitalization)
  Sender: FDA-Public Use
  Company Number: US-JNJFOC-20070805865

PATIENT
  Sex: Female
  Weight: 54.43 kg

DRUGS (10)
  1. DURAGESIC-100 [Suspect]
     Indication: PAIN
     Route: 062
  2. LIPITOR [Concomitant]
     Route: 048
  3. COUMADIN [Concomitant]
     Route: 048
  4. COUMADIN [Concomitant]
     Route: 048
  5. DILANTIN [Concomitant]
     Indication: CONVULSION
     Route: 048
  6. LYRICA [Concomitant]
     Indication: HERPES ZOSTER
     Route: 048
  7. PROTONIX [Concomitant]
     Route: 048
  8. LANTUS [Concomitant]
     Indication: DIABETES MELLITUS
     Route: 058
  9. MS CONTIN [Concomitant]
     Indication: PAIN
     Route: 048
  10. DURANEB INHALER [Concomitant]
     Indication: ASTHMA
     Dosage: 2.5MG/10.5MG  2 PUFFS IN 24 HOURS
     Route: 055

REACTIONS (4)
  - ARRHYTHMIA [None]
  - CARDIAC FAILURE CONGESTIVE [None]
  - HERPES ZOSTER [None]
  - INCORRECT DRUG ADMINISTRATION DURATION [None]
